FAERS Safety Report 7207805-2 (Version None)
Quarter: 2011Q1

REPORT INFORMATION
  Report Type: 
  Country: None (occurrence: None)
  Receive Date: 20110104
  Receipt Date: 20101223
  Transmission Date: 20110831
  Serious: Yes (Hospitalization)
  Sender: FDA-Public Use
  Company Number: US-ASTRAZENECA-2010SE60629

PATIENT
  Age: 81 Year
  Sex: Male

DRUGS (5)
  1. ATENOLOL [Suspect]
     Route: 065
  2. EYE DROPS NOS [Suspect]
     Route: 047
  3. LIPITOR [Suspect]
     Route: 065
  4. MAXAIR [Suspect]
     Indication: ASTHMA
     Route: 055
  5. PLAVIX [Suspect]
     Route: 065

REACTIONS (1)
  - PNEUMONIA [None]
